FAERS Safety Report 4368675-3 (Version None)
Quarter: 2004Q2

REPORT INFORMATION
  Report Type: 
  Country: None (occurrence: None)
  Receive Date: 20040602
  Receipt Date: 20040512
  Transmission Date: 20050107
  Serious: Yes (Hospitalization)
  Sender: FDA-Public Use
  Company Number: DSA_24434_2004

PATIENT
  Age: 73 Year
  Sex: Male

DRUGS (3)
  1. RENIVACE [Suspect]
     Indication: HYPERTENSION
     Dosage: DF UNK PO
     Route: 048
     Dates: start: 19990101
  2. NIFEDIPINE [Concomitant]
  3. AMLODIPINE BESYLATE [Concomitant]

REACTIONS (12)
  - ACQUIRED MACROGLOSSIA [None]
  - ANGIONEUROTIC OEDEMA [None]
  - AURICULAR SWELLING [None]
  - BLOOD PRESSURE DECREASED [None]
  - CONJUNCTIVAL HYPERAEMIA [None]
  - DYSPNOEA [None]
  - FACE OEDEMA [None]
  - GENERALISED ERYTHEMA [None]
  - OEDEMA PERIPHERAL [None]
  - PRURITUS [None]
  - SPEECH DISORDER [None]
  - TONGUE OEDEMA [None]
